FAERS Safety Report 8596987-6 (Version None)
Quarter: 2012Q3

REPORT INFORMATION
  Report Type: 
  Country: None (occurrence: None)
  Receive Date: 20120815
  Receipt Date: 20100313
  Transmission Date: 20120928
  Serious: Yes (Other)
  Sender: FDA-Public Use
  Company Number: PHHY2010ES094414

PATIENT

DRUGS (6)
  1. PAMIDRONATE DISODIUM [Suspect]
     Dosage: 30 MG
  2. CALCIUM [Concomitant]
     Dosage: 1000 MG, PER DAY
  3. COLECALCIFEROL [Concomitant]
     Dosage: 800 IU, PER DAY
  4. CYCLOSPORINE [Concomitant]
  5. PREDNISONE TAB [Concomitant]
  6. MYCOPHENOLATE MOFETIL [Concomitant]

REACTIONS (1)
  - FRACTURE [None]
